FAERS Safety Report 8198106-7 (Version None)
Quarter: 2012Q1

REPORT INFORMATION
  Report Type: 
  Country: None (occurrence: None)
  Receive Date: 20120309
  Receipt Date: 20120119
  Transmission Date: 20120608
  Serious: No
  Sender: FDA-Public Use
  Company Number: US-AMGEN-USASP2012003961

PATIENT
  Age: 78 Year
  Sex: Female

DRUGS (5)
  1. FLAXSEED OIL [Concomitant]
  2. ATENOLOL [Concomitant]
  3. COUMADIN [Concomitant]
  4. PROLIA [Suspect]
     Indication: OSTEOPOROSIS POSTMENOPAUSAL
     Dates: start: 20110707
  5. XALATAN [Concomitant]

REACTIONS (4)
  - MYALGIA [None]
  - PAIN IN EXTREMITY [None]
  - ARTHRALGIA [None]
  - POOR QUALITY SLEEP [None]
